FAERS Safety Report 15480888 (Version 1)
Quarter: 2018Q4

REPORT INFORMATION
  Report Type: Spontaneous
  Country: US (occurrence: US)
  Receive Date: 20181010
  Receipt Date: 20181010
  Transmission Date: 20190205
  Serious: No
  Sender: FDA-Public Use
  Company Number: US-JNJFOC-20180918068

PATIENT
  Age: 75 Year
  Sex: Female

DRUGS (3)
  1. MOTRIN IB [Suspect]
     Active Substance: IBUPROFEN
     Route: 048
  2. AMPYRA [Suspect]
     Active Substance: DALFAMPRIDINE
     Indication: PRODUCT USED FOR UNKNOWN INDICATION
     Route: 048
     Dates: start: 201209
  3. MOTRIN IB [Suspect]
     Active Substance: IBUPROFEN
     Indication: JOINT INJURY
     Dosage: 400-800MG
     Route: 048
     Dates: start: 201808

REACTIONS (2)
  - Product use in unapproved indication [Unknown]
  - Blood pressure increased [Unknown]

NARRATIVE: CASE EVENT DATE: 201808
